FAERS Safety Report 24419150 (Version 1)
Quarter: 2024Q4

REPORT INFORMATION
  Report Type: Other
  Country: NL (occurrence: NL)
  Receive Date: 20241009
  Receipt Date: 20241009
  Transmission Date: 20250114
  Serious: Yes (Other)
  Sender: GLENMARK
  Company Number: None

PATIENT

DRUGS (3)
  1. ROSUVASTATIN CALCIUM [Suspect]
     Active Substance: ROSUVASTATIN CALCIUM
     Indication: Angiopathy
     Dosage: UNK (1X,)
     Route: 065
     Dates: start: 20240704
  2. RIVAROXABAN [Suspect]
     Active Substance: RIVAROXABAN
     Indication: Complication associated with device
     Dosage: UNK
     Route: 065
     Dates: start: 20240904, end: 20240921
  3. CLOPIDOGREL [Suspect]
     Active Substance: CLOPIDOGREL BISULFATE
     Indication: Angiopathy
     Dosage: UNK
     Route: 065
     Dates: start: 20240704, end: 20240714

REACTIONS (4)
  - Pyrexia [Recovering/Resolving]
  - Pruritus [Recovering/Resolving]
  - Constipation [Recovering/Resolving]
  - Headache [Recovering/Resolving]
